FAERS Safety Report 6613130-0 (Version None)
Quarter: 2010Q1

REPORT INFORMATION
  Report Type: 
  Country: None (occurrence: None)
  Receive Date: 20100304
  Receipt Date: 20100301
  Transmission Date: 20100710
  Serious: Yes (Hospitalization)
  Sender: FDA-Public Use
  Company Number: IT-TEVA-226004ISR

PATIENT
  Sex: Male

DRUGS (1)
  1. CISPLATIN [Suspect]

REACTIONS (2)
  - ANURIA [None]
  - CONSTIPATION [None]
